FAERS Safety Report 23365244 (Version 1)
Quarter: 2024Q1

REPORT INFORMATION
  Report Type: Spontaneous
  Country: None (occurrence: US)
  Receive Date: 20240104
  Receipt Date: 20240104
  Transmission Date: 20240410
  Serious: No
  Sender: FDA-Public Use
  Company Number: US-STI Pharma LLC-2150126

PATIENT
  Age: 73 Year
  Sex: Female

DRUGS (6)
  1. ETHAMBUTOL HYDROCHLORIDE [Suspect]
     Active Substance: ETHAMBUTOL HYDROCHLORIDE
     Dates: start: 202006
  2. AZITHROMYCIN [Concomitant]
     Active Substance: AZITHROMYCIN
     Dates: start: 202006
  3. CLOFAZIMINE [Concomitant]
     Active Substance: CLOFAZIMINE
     Dates: start: 202006
  4. AMIKACIN [Concomitant]
     Active Substance: AMIKACIN
     Route: 042
     Dates: start: 202007
  5. IMIPENEM [Concomitant]
     Active Substance: IMIPENEM
     Route: 042
     Dates: start: 202007
  6. Triple ABX Therapy [Concomitant]
     Dates: end: 202109

REACTIONS (4)
  - Disease progression [Unknown]
  - Sputum culture positive [Unknown]
  - Mycobacterium abscessus infection [Unknown]
  - Disease progression [Unknown]
